FAERS Safety Report 12971327 (Version 1)
Quarter: 2016Q4

REPORT INFORMATION
  Report Type: Spontaneous
  Country: US (occurrence: US)
  Receive Date: 20161123
  Receipt Date: 20161123
  Transmission Date: 20170207
  Serious: No
  Sender: FDA-Public Use
  Company Number: US-JAZZ-2016-US-019735

PATIENT
  Sex: Male

DRUGS (25)
  1. XYREM [Suspect]
     Active Substance: SODIUM OXYBATE
     Dosage: 3.25 G, BID
     Route: 048
     Dates: start: 201506
  2. BUTALBITAL, ASPIRIN, CAFFEINE AND CODEINE PHO [Concomitant]
  3. GLUCOSAMINE CHONDROITIN            /01430901/ [Concomitant]
  4. S-ADENOSYLMETHIONINE SULFATE P-TOLUENESULFONATE [Concomitant]
     Active Substance: ADEMETIONINE SULFATE TOSILATE
  5. LUNESTA [Concomitant]
     Active Substance: ESZOPICLONE
  6. TESTOSTERONE. [Concomitant]
     Active Substance: TESTOSTERONE
  7. ENTERAGAM [Concomitant]
     Active Substance: DIETARY SUPPLEMENT
  8. KRILL OIL [Concomitant]
     Active Substance: DIETARY SUPPLEMENT
  9. AZELASTINE [Concomitant]
     Active Substance: AZELASTINE
  10. HUMIRA [Concomitant]
     Active Substance: ADALIMUMAB
  11. OXYCODONE [Concomitant]
     Active Substance: OXYCODONE
  12. FISH OIL [Concomitant]
     Active Substance: FISH OIL
  13. PROCRIT [Concomitant]
     Active Substance: ERYTHROPOIETIN
  14. HYDROCODONE BITARTRATE AND ACETAMINOPHEN [Concomitant]
     Active Substance: ACETAMINOPHEN\HYDROCODONE BITARTRATE
  15. GRAPE SEED EXTRACT HS [Concomitant]
  16. XYREM [Suspect]
     Active Substance: SODIUM OXYBATE
     Indication: HYPERSOMNIA
     Dosage: 2.25 G, BID
     Route: 048
     Dates: start: 201207, end: 2012
  17. COENZYME Q10 [Concomitant]
     Active Substance: UBIDECARENONE
  18. XYREM [Suspect]
     Active Substance: SODIUM OXYBATE
     Dosage: DOSE ADJUSTMENT
     Route: 048
     Dates: start: 201208, end: 2015
  19. AMITRIPTYLINE HCL [Concomitant]
     Active Substance: AMITRIPTYLINE
  20. FENTANYL. [Concomitant]
     Active Substance: FENTANYL
  21. IRON [Concomitant]
     Active Substance: IRON
  22. METAMUCIL [Concomitant]
     Active Substance: PLANTAGO SEED
  23. ATENOLOL. [Concomitant]
     Active Substance: ATENOLOL
  24. FLONASE                            /00908302/ [Concomitant]
     Active Substance: MOMETASONE FUROATE
  25. CHOLESTOFF ORIGINAL [Concomitant]

REACTIONS (1)
  - Hypotension [Unknown]

NARRATIVE: CASE EVENT DATE: 2012
